FAERS Safety Report 4297774-X (Version None)
Quarter: 2004Q1

REPORT INFORMATION
  Report Type: 
  Country: None (occurrence: None)
  Receive Date: 20040126
  Receipt Date: 20030919
  Transmission Date: 20041129
  Serious: No
  Sender: FDA-Public Use
  Company Number: USA030947744

PATIENT
  Age: 41 Year
  Sex: Male

DRUGS (2)
  1. STRATTERA [Suspect]
     Indication: ATTENTION DEFICIT/HYPERACTIVITY DISORDER
     Dosage: 40 MG
     Dates: start: 20030913
  2. STRATTERA [Suspect]
     Indication: DEPRESSION
     Dosage: 40 MG
     Dates: start: 20030913

REACTIONS (4)
  - ERECTILE DYSFUNCTION [None]
  - EUPHORIC MOOD [None]
  - FEELING ABNORMAL [None]
  - INSOMNIA [None]
